FAERS Safety Report 11413930 (Version 8)
Quarter: 2015Q3

REPORT INFORMATION
  Report Type: Spontaneous
  Country: US (occurrence: US)
  Receive Date: 20150824
  Receipt Date: 20150921
  Transmission Date: 20151125
  Serious: Yes (Hospitalization, Other)
  Sender: FDA-Public Use
  Company Number: US-GLAXOSMITHKLINE-US2015GSK119824

PATIENT
  Age: 63 Year
  Weight: 83 kg

DRUGS (3)
  1. GENTAMYCIN CREAM [Suspect]
     Active Substance: GENTAMICIN
  2. MUPIROCIN CALCIUM CREAM [Suspect]
     Active Substance: MUPIROCIN CALCIUM
     Dosage: UNK
  3. MUPIROCIN CALCIUM CREAM [Suspect]
     Active Substance: MUPIROCIN CALCIUM
     Indication: PRODUCT USED FOR UNKNOWN INDICATION
     Dosage: 2 DF, QD
     Route: 061
     Dates: start: 20150501, end: 20150820

REACTIONS (14)
  - Infection [Not Recovered/Not Resolved]
  - Impaired healing [Not Recovered/Not Resolved]
  - Bacterial infection [Unknown]
  - Candida infection [Unknown]
  - Staphylococcal infection [Unknown]
  - Cellulitis [Not Recovered/Not Resolved]
  - Enterobacter infection [Unknown]
  - Sepsis [Recovered/Resolved with Sequelae]
  - Peritonitis [Recovered/Resolved with Sequelae]
  - Medical device complication [Recovered/Resolved with Sequelae]
  - Haemodialysis [Not Recovered/Not Resolved]
  - Drug administration error [Not Recovered/Not Resolved]
  - Catheter site infection [Unknown]
  - Post procedural cellulitis [Not Recovered/Not Resolved]

NARRATIVE: CASE EVENT DATE: 201505
